FAERS Safety Report 9467329 (Version 2)
Quarter: 2015Q4

REPORT INFORMATION
  Report Type: Report from Study
  Country: US (occurrence: US)
  Receive Date: 20130821
  Receipt Date: 20151102
  Transmission Date: 20160305
  Serious: Yes (Other)
  Sender: FDA-Public Use
  Company Number: US-ROCHE-1264596

PATIENT
  Sex: Female

DRUGS (3)
  1. BETADINE [Concomitant]
     Active Substance: POVIDONE-IODINE
  2. LUCENTIS [Suspect]
     Active Substance: RANIBIZUMAB
     Indication: NEOVASCULAR AGE-RELATED MACULAR DEGENERATION
     Dosage: RECEIVED ON 10/JUL/2013
     Route: 050
  3. VIGAMOX [Concomitant]
     Active Substance: MOXIFLOXACIN HYDROCHLORIDE

REACTIONS (5)
  - Blindness unilateral [Unknown]
  - Vitreous haemorrhage [Recovering/Resolving]
  - Macular degeneration [Unknown]
  - Detachment of retinal pigment epithelium [Unknown]
  - Vision blurred [Unknown]
